FAERS Safety Report 13767768 (Version 2)
Quarter: 2017Q3

REPORT INFORMATION
  Report Type: Report from Study
  Country: JP (occurrence: JP)
  Receive Date: 20170719
  Receipt Date: 20170811
  Transmission Date: 20171127
  Serious: Yes (Hospitalization)
  Sender: FDA-Public Use
  Company Number: JP-CONCORDIA PHARMACEUTICALS INC.-MAPI_00012212

PATIENT
  Age: 63 Year
  Sex: Female

DRUGS (14)
  1. RIZE [Concomitant]
     Active Substance: CLOTIAZEPAM
  2. ZONISAMIDE CAPSULE [Suspect]
     Active Substance: ZONISAMIDE
     Indication: PARKINSON^S DISEASE
     Route: 048
     Dates: end: 20160416
  3. REFLEX [Concomitant]
     Active Substance: MIRTAZAPINE
  4. NESINA [Concomitant]
     Active Substance: ALOGLIPTIN BENZOATE
  5. STALEVO [Concomitant]
     Active Substance: CARBIDOPA\ENTACAPONE\LEVODOPA
  6. NEUPRO [Concomitant]
     Active Substance: ROTIGOTINE
  7. RIVOTRIL [Concomitant]
     Active Substance: CLONAZEPAM
  8. ZONISAMIDE CAPSULE [Suspect]
     Active Substance: ZONISAMIDE
     Route: 048
     Dates: start: 20160417, end: 20160916
  9. CRESTOR [Concomitant]
     Active Substance: ROSUVASTATIN CALCIUM
  10. PANTETHINE [Concomitant]
     Active Substance: PANTETHINE
  11. AMITIZA [Concomitant]
     Active Substance: LUBIPROSTONE
  12. NOURIAST [Concomitant]
     Active Substance: ISTRADEFYLLINE
  13. MEDOPAR [Concomitant]
  14. MAGNESIUM OXIDE. [Concomitant]
     Active Substance: MAGNESIUM OXIDE

REACTIONS (2)
  - Neuroleptic malignant syndrome [Recovered/Resolved]
  - Pyelonephritis [Recovered/Resolved]

NARRATIVE: CASE EVENT DATE: 20160715
